FAERS Safety Report 9276470 (Version 1)
Quarter: 2013Q2

REPORT INFORMATION
  Report Type: Spontaneous
  Country: US (occurrence: US)
  Receive Date: 20130507
  Receipt Date: 20130507
  Transmission Date: 20140414
  Serious: Yes (Congenital Anomaly)
  Sender: FDA-Public Use
  Company Number: US-JNJFOC-20130502549

PATIENT
  Sex: Male

DRUGS (5)
  1. TOPAMAX [Suspect]
     Indication: FOETAL EXPOSURE DURING PREGNANCY
     Route: 064
  2. TOPROL XL [Suspect]
     Indication: FOETAL EXPOSURE DURING PREGNANCY
     Route: 064
  3. OXAPROZIN [Suspect]
     Indication: FOETAL EXPOSURE DURING PREGNANCY
     Route: 064
  4. AXERT [Suspect]
     Indication: FOETAL EXPOSURE DURING PREGNANCY
     Route: 064
  5. VICODIN [Suspect]
     Indication: FOETAL EXPOSURE DURING PREGNANCY
     Route: 064

REACTIONS (3)
  - Noonan syndrome [Unknown]
  - Congenital genital malformation male [Unknown]
  - Congenital lymphoedema [Unknown]
